FAERS Safety Report 5823425-6 (Version None)
Quarter: 2008Q3

REPORT INFORMATION
  Report Type: 
  Country: None (occurrence: None)
  Receive Date: 20080725
  Receipt Date: 20070801
  Transmission Date: 20090109
  Serious: No
  Sender: FDA-Public Use
  Company Number: US-ABBOTT-07P-163-0376790-00

PATIENT
  Age: 40 Year
  Sex: Male

DRUGS (2)
  1. NORVIR [Suspect]
     Indication: HIV TEST POSITIVE
     Route: 048
  2. NORVIR [Suspect]
     Route: 048

REACTIONS (1)
  - NEPHROPATHY TOXIC [None]
